FAERS Safety Report 21089482 (Version 1)
Quarter: 2022Q3

REPORT INFORMATION
  Report Type: Spontaneous
  Country: US (occurrence: US)
  Receive Date: 20220715
  Receipt Date: 20220715
  Transmission Date: 20221027
  Serious: No
  Sender: FDA-Public Use
  Company Number: US-MYLANLABS-2022M1051463

PATIENT
  Sex: Male
  Weight: 77.11 kg

DRUGS (1)
  1. FENTANYL TRANSDERMAL SYSTEM [Suspect]
     Active Substance: FENTANYL
     Indication: Product used for unknown indication
     Dosage: 12 MICROGRAM, QH
     Route: 062
     Dates: end: 20220705

REACTIONS (3)
  - Abdominal pain upper [Unknown]
  - Anxiety [Unknown]
  - Drug ineffective [Unknown]
